FAERS Safety Report 7423750-1 (Version None)
Quarter: 2011Q2

REPORT INFORMATION
  Report Type: 
  Country: None (occurrence: None)
  Receive Date: 20110419
  Receipt Date: 20110411
  Transmission Date: 20111010
  Serious: Yes (Life-Threatening, Hospitalization)
  Sender: FDA-Public Use
  Company Number: DE-TEVA-260255GER

PATIENT
  Sex: Male

DRUGS (11)
  1. PREDNISOLONE [Suspect]
     Indication: PROSTATE CANCER METASTATIC
     Route: 048
     Dates: start: 20100505
  2. PANTOPRAZOLE [Concomitant]
     Indication: PROPHYLAXIS AGAINST GASTROINTESTINAL ULCER
     Dosage: 120 MILLIGRAM;
     Route: 048
     Dates: start: 20101001
  3. PLACEBO [Suspect]
     Indication: PROSTATE CANCER METASTATIC
     Dosage: 120 DOSAGE FORMS;
     Route: 048
     Dates: start: 20100505, end: 20101208
  4. TRENANTONE [Concomitant]
     Dosage: IN 3 MONTH
     Dates: start: 20100421
  5. DICLOFENAC SODIUM [Concomitant]
     Indication: CANCER PAIN
     Dosage: 150 MILLIGRAM;
     Route: 048
     Dates: start: 20101001
  6. TRENANTONE [Concomitant]
     Indication: HORMONE THERAPY
     Dates: start: 20091222
  7. TRENANTONE [Concomitant]
     Indication: HORMONE REPLACEMENT THERAPY
     Dates: start: 20091222
  8. METAMIZOLE SODIUM [Concomitant]
     Indication: CANCER PAIN
     Dosage: 40 GTT AS REQUIRED
     Route: 048
     Dates: start: 20100811
  9. ZOMETA [Concomitant]
     Indication: HORMONE THERAPY
     Dates: start: 20081222
  10. ZOMETA [Concomitant]
     Indication: PROPHYLAXIS
     Dosage: IN A MONTH
     Dates: start: 20100421
  11. ABIRATERONE ACETATE [Suspect]
     Indication: PROSTATE CANCER METASTATIC
     Dosage: 120 DOSAGE FORMS;
     Route: 048
     Dates: start: 20100505, end: 20101208

REACTIONS (3)
  - BONE MARROW FAILURE [None]
  - ANAEMIA [None]
  - NEOPLASM MALIGNANT [None]
